FAERS Safety Report 12252462 (Version 3)
Quarter: 2016Q2

REPORT INFORMATION
  Report Type: Spontaneous
  Country: US (occurrence: US)
  Receive Date: 20160411
  Receipt Date: 20160608
  Transmission Date: 20160815
  Serious: Yes (Disabling, Other)
  Sender: FDA-Public Use
  Company Number: US-AUROBINDO-AUR-APU-2016-04316

PATIENT
  Age: 73 Year
  Sex: Male

DRUGS (1)
  1. LEVOFLOXACIN. [Suspect]
     Active Substance: LEVOFLOXACIN
     Indication: LUNG INFECTION
     Dosage: UNK
     Route: 065
     Dates: start: 20151229, end: 20160105

REACTIONS (6)
  - Abasia [Recovering/Resolving]
  - Paraesthesia [Recovering/Resolving]
  - Wheelchair user [Recovering/Resolving]
  - Peripheral swelling [Recovering/Resolving]
  - Tendon rupture [Recovering/Resolving]
  - Pain in extremity [Recovering/Resolving]

NARRATIVE: CASE EVENT DATE: 20160105
